FAERS Safety Report 5397932-7 (Version None)
Quarter: 2007Q3

REPORT INFORMATION
  Report Type: 
  Country: None (occurrence: None)
  Receive Date: 20070724
  Receipt Date: 20070710
  Transmission Date: 20080115
  Serious: Yes (Hospitalization)
  Sender: FDA-Public Use
  Company Number: RENA-12239

PATIENT
  Age: 79 Year
  Sex: Male

DRUGS (1)
  1. RENAGEL [Suspect]
     Indication: HYPERPHOSPHATAEMIA
     Dosage: 0.8 G TID PO
     Route: 048

REACTIONS (4)
  - DYSPHAGIA [None]
  - ENDOTRACHEAL INTUBATION COMPLICATION [None]
  - HEART VALVE REPLACEMENT [None]
  - POST PROCEDURAL COMPLICATION [None]
